FAERS Safety Report 7910699-0 (Version None)
Quarter: 2011Q4

REPORT INFORMATION
  Report Type: 
  Country: None (occurrence: None)
  Receive Date: 20111111
  Receipt Date: 20111107
  Transmission Date: 20120403
  Serious: Yes (Life-Threatening, Hospitalization)
  Sender: FDA-Public Use
  Company Number: CA-ASTRAZENECA-2011SE67279

PATIENT
  Age: 45 Year
  Sex: Female

DRUGS (7)
  1. SEROQUEL [Suspect]
     Route: 048
  2. TOPAMAX [Concomitant]
  3. VARENICLINE TARTRATE [Suspect]
     Route: 048
  4. CARBAMAZEPINE [Concomitant]
  5. VARENICLINE TARTRATE [Suspect]
     Route: 048
  6. BUPROPION HCL [Concomitant]
  7. VALPROATE SODIUM [Concomitant]

REACTIONS (2)
  - SUICIDE ATTEMPT [None]
  - INTENTIONAL OVERDOSE [None]
